FAERS Safety Report 18414752 (Version 1)
Quarter: 2020Q4

REPORT INFORMATION
  Report Type: Spontaneous
  Country: IT (occurrence: IT)
  Receive Date: 20201022
  Receipt Date: 20201022
  Transmission Date: 20210114
  Serious: Yes (Other)
  Sender: FDA-Public Use
  Company Number: IT-HIKMA PHARMACEUTICALS USA INC.-IT-H14001-20-04794

PATIENT
  Age: 55 Year
  Sex: Male

DRUGS (4)
  1. CYTARABINE. [Suspect]
     Active Substance: CYTARABINE
     Indication: PRODUCT USED FOR UNKNOWN INDICATION
     Dosage: 200 MG/M2
     Route: 065
  2. DAUNORUBICIN HCL [Suspect]
     Active Substance: DAUNORUBICIN HYDROCHLORIDE
     Indication: PRODUCT USED FOR UNKNOWN INDICATION
     Dosage: 60 MG/M2
     Route: 065
  3. GEMTUZUMAB OZOGAMICIN [Suspect]
     Active Substance: GEMTUZUMAB OZOGAMICIN
     Indication: PRODUCT USED FOR UNKNOWN INDICATION
     Dosage: 3 MG/M2
     Route: 065
  4. CYTARABINE. [Suspect]
     Active Substance: CYTARABINE
     Route: 065

REACTIONS (5)
  - Hyperleukocytosis [Unknown]
  - Thrombocytopenia [Unknown]
  - Pyrexia [Unknown]
  - Anaemia [Unknown]
  - Dyspnoea [Unknown]
